FAERS Safety Report 8193975 (Version 7)
Quarter: 2012Q4

REPORT INFORMATION
  Report Type: 
  Country: GB (occurrence: GB)
  Receive Date: 20111021
  Receipt Date: 20120905
  Transmission Date: 20130627
  Serious: Yes (Hospitalization)
  Sender: FDA-Public Use
  Company Number: GB-JNJFOC-20111007620

PATIENT
  Age: 37 Year
  Sex: Male

DRUGS (4)
  1. IBUPROFEN [Suspect]
     Route: 048
  2. IBUPROFEN [Suspect]
     Indication: BACK PAIN
     Route: 048
     Dates: start: 20110601, end: 20110930
  3. DICLOFENAC [Suspect]
     Indication: BACK PAIN
     Route: 048
     Dates: start: 20090501, end: 20110930
  4. AMITRIPTYLINE [Concomitant]

REACTIONS (7)
  - Peptic ulcer [Recovering/Resolving]
  - Helicobacter infection [Unknown]
  - Duodenitis [Recovering/Resolving]
  - Abdominal pain [Recovering/Resolving]
  - Abdominal pain upper [Recovering/Resolving]
  - Melaena [Recovering/Resolving]
  - Gastritis [Recovering/Resolving]
